FAERS Safety Report 7353094-8 (Version None)
Quarter: 2011Q1

REPORT INFORMATION
  Report Type: 
  Country: None (occurrence: None)
  Receive Date: 20110315
  Receipt Date: 20110311
  Transmission Date: 20110831
  Serious: Yes (Hospitalization)
  Sender: FDA-Public Use
  Company Number: DE-ROCHE-765254

PATIENT
  Age: 58 Year
  Sex: Female

DRUGS (3)
  1. EFEROX [Concomitant]
     Dosage: TAKEN IRREGULARLY
  2. NOVALGIN [Concomitant]
     Dosage: TAKEN IRREGULARLY
  3. RIVOTRIL [Suspect]
     Route: 048
     Dates: start: 19910101

REACTIONS (1)
  - SYNCOPE [None]
